FAERS Safety Report 8007377-9 (Version None)
Quarter: 2011Q4

REPORT INFORMATION
  Report Type: 
  Country: None (occurrence: None)
  Receive Date: 20111227
  Receipt Date: 20111222
  Transmission Date: 20120403
  Serious: Yes (Other)
  Sender: FDA-Public Use
  Company Number: SE-PFIZER INC-2011229282

PATIENT
  Age: 54 Year
  Sex: Female

DRUGS (3)
  1. VARENICLINE TARTRATE [Suspect]
     Indication: SMOKING CESSATION THERAPY
     Dosage: 1 MG, 2X/DAY
     Dates: start: 20110227, end: 20110328
  2. VARENICLINE TARTRATE [Suspect]
     Dosage: 0.5 MG, 2X/DAY
     Dates: start: 20110329, end: 20110818
  3. SIMVASTATIN [Concomitant]
     Dosage: UNK

REACTIONS (4)
  - DEPRESSION [None]
  - PANIC ATTACK [None]
  - ANXIETY DISORDER [None]
  - NAUSEA [None]
